FAERS Safety Report 10239378 (Version 1)
Quarter: 2014Q2

REPORT INFORMATION
  Report Type: Spontaneous
  Country: US (occurrence: US)
  Receive Date: 20140616
  Receipt Date: 20140616
  Transmission Date: 20141212
  Serious: Yes (Hospitalization)
  Sender: FDA-Public Use
  Company Number: US-FRI-1000068050

PATIENT
  Age: 70 Year
  Sex: Male

DRUGS (17)
  1. BYSTOLIC [Suspect]
     Indication: HYPERTENSION
     Dosage: 5MG
     Route: 048
     Dates: start: 2012
  2. PROAIR [Concomitant]
     Dosage: TWO PUFFS AS NEEDED
  3. ADVAIR [Concomitant]
  4. SPIRIVA [Concomitant]
  5. KOMBIGLYZE [Concomitant]
     Dosage: IN THE EVENING WITH A MEAL
  6. ZOLPIDEM [Concomitant]
     Indication: INSOMNIA
     Dosage: 10MG
  7. AMLODIPINE [Concomitant]
     Dosage: 10MG NIGHTLY
  8. CITALOPRAM [Concomitant]
  9. SIMVASTATIN [Concomitant]
     Indication: BLOOD CHOLESTEROL INCREASED
     Dosage: 20MG
  10. DEXILANT [Concomitant]
     Indication: GASTROOESOPHAGEAL REFLUX DISEASE
  11. LOSARTAN [Concomitant]
  12. ISOSORBIDE [Concomitant]
     Indication: HYPERTENSION
     Dosage: 30MG
  13. HYDROCHLOROTHIAZIDE [Concomitant]
     Dosage: 12.5MG
  14. URSODIOL [Concomitant]
     Indication: HEPATIC STEATOSIS
     Dosage: 500MG
  15. MELOXICAM [Concomitant]
     Indication: ARTHRITIS
     Dosage: 15MG
  16. ASPIRIN [Concomitant]
  17. VITAMIN (NOS) [Concomitant]

REACTIONS (5)
  - Coronary artery occlusion [Unknown]
  - Hypotension [Unknown]
  - Dyspnoea [Recovered/Resolved]
  - Chest pain [Recovered/Resolved]
  - Heart valve incompetence [Unknown]
